FAERS Safety Report 8979469 (Version 1)
Quarter: 2012Q4

REPORT INFORMATION
  Report Type: Report from Study
  Country: CL (occurrence: CL)
  Receive Date: 20121221
  Receipt Date: 20121221
  Transmission Date: 20130627
  Serious: Yes (Hospitalization, Other)
  Sender: FDA-Public Use
  Company Number: CL-ROCHE-1165526

PATIENT
  Age: 52 Year
  Sex: Male
  Weight: 97 kg

DRUGS (3)
  1. PEG-INTERFERON ALFA 2A [Suspect]
     Indication: HEPATITIS C
     Route: 058
     Dates: start: 20120620, end: 20121205
  2. RIBAVIRIN [Suspect]
     Indication: HEPATITIS C
     Route: 048
     Dates: start: 20120620, end: 20121205
  3. INSULIN [Concomitant]
     Indication: DIABETES MELLITUS
     Route: 058
     Dates: start: 201207

REACTIONS (3)
  - Muscle spasms [Not Recovered/Not Resolved]
  - Hepatic encephalopathy [Recovering/Resolving]
  - Ascites [Not Recovered/Not Resolved]
